FAERS Safety Report 23138999 (Version 2)
Quarter: 2023Q4

REPORT INFORMATION
  Report Type: Spontaneous
  Country: CA (occurrence: CA)
  Receive Date: 20231102
  Receipt Date: 20231130
  Transmission Date: 20240110
  Serious: Yes (Hospitalization)
  Sender: FDA-Public Use
  Company Number: CA-PFIZER INC-202201188694

PATIENT
  Age: 41 Year
  Sex: Female

DRUGS (6)
  1. RUXIENCE [Suspect]
     Active Substance: RITUXIMAB-PVVR
     Indication: Antisynthetase syndrome
     Dosage: 1000 MG
     Route: 042
     Dates: start: 20220515
  2. RUXIENCE [Suspect]
     Active Substance: RITUXIMAB-PVVR
     Indication: Myocarditis
     Dosage: 1000 MG
     Route: 042
     Dates: start: 20220530
  3. RUXIENCE [Suspect]
     Active Substance: RITUXIMAB-PVVR
     Indication: Interstitial lung disease
     Dosage: 500MG, EVERY 6 MONTHS MAINTENANCE DOSE
     Route: 042
     Dates: start: 20221121
  4. RUXIENCE [Suspect]
     Active Substance: RITUXIMAB-PVVR
     Dosage: 500 MG, EVERY 6 MONTHS (RETREATMENT)
     Route: 042
  5. MYCOPHENOLIC ACID [Concomitant]
     Active Substance: MYCOPHENOLIC ACID
     Dosage: 1000 MG, EVERY 2 DAYS
     Route: 065
  6. SOLU-MEDROL [Concomitant]
     Active Substance: METHYLPREDNISOLONE SODIUM SUCCINATE
     Dosage: 60MG IV EVERY 8H
     Route: 042

REACTIONS (3)
  - Pulmonary embolism [Unknown]
  - Pulmonary fibrosis [Unknown]
  - Off label use [Unknown]

NARRATIVE: CASE EVENT DATE: 20220101
